FAERS Safety Report 4471968-2 (Version None)
Quarter: 2004Q4

REPORT INFORMATION
  Report Type: 
  Country: None (occurrence: None)
  Receive Date: 20041007
  Receipt Date: 20040928
  Transmission Date: 20050328
  Serious: Yes (Other)
  Sender: FDA-Public Use
  Company Number: 209323

PATIENT
  Age: 66 Year
  Sex: Female

DRUGS (3)
  1. METALYSE (TENECTEPLASE) PWDR+ SOLVENT, INJECTION SOLN 50 MG [Suspect]
     Indication: ACUTE MYOCARDIAL INFARCTION
     Dates: start: 20040402
  2. ABCIXIMAB (ABCIXIMAB) [Suspect]
     Dates: start: 20040402
  3. RETEVASE [Suspect]
     Indication: ACUTE MYOCARDIAL INFARCTION
     Dates: start: 20040402

REACTIONS (6)
  - ACUTE MYOCARDIAL INFARCTION [None]
  - CORONARY ARTERY OCCLUSION [None]
  - DRUG INTERACTION [None]
  - HAEMATOMA [None]
  - PUNCTURE SITE HAEMORRHAGE [None]
  - THROMBOCYTOPENIA [None]
